FAERS Safety Report 7953608-0 (Version None)
Quarter: 2011Q4

REPORT INFORMATION
  Report Type: 
  Country: None (occurrence: None)
  Receive Date: 20111202
  Receipt Date: 20111128
  Transmission Date: 20120403
  Serious: Yes (Hospitalization, Other)
  Sender: FDA-Public Use
  Company Number: US-PFIZER INC-2011055399

PATIENT
  Sex: Male

DRUGS (14)
  1. SUTENT [Suspect]
     Indication: METASTATIC RENAL CELL CARCINOMA
     Dosage: 50 MG, 1X/DAY, X 28 DAYS EVERY 42 DAYS
     Route: 048
     Dates: start: 20110304
  2. SUTENT [Suspect]
     Dosage: UNK
     Dates: start: 20110821, end: 20110825
  3. ISOSORBIDE [Concomitant]
     Dosage: 30 MG, 1X/DAY
  4. VITAMIN D [Concomitant]
     Dosage: 2000 IU, 1X/DAY
  5. ALLOPURINOL [Concomitant]
     Dosage: 150 MG, 1X/DAY
  6. ZOCOR [Concomitant]
     Dosage: 20 MG, 1X/DAY
  7. LISINOPRIL [Concomitant]
     Dosage: 10 MG, 1X/DAY
  8. SUTENT [Suspect]
     Indication: METASTASES TO LUNG
     Dosage: UNK
     Route: 048
     Dates: start: 20110529
  9. LORAZEPAM [Concomitant]
     Dosage: UNK
  10. SUTENT [Suspect]
     Dosage: UNK
     Dates: start: 20110710
  11. METOPROLOL [Concomitant]
     Dosage: UNK
  12. SUTENT [Suspect]
     Indication: RENAL CANCER RECURRENT
     Dosage: 37.5 MG, 1X/DAY, X 28 DAYS EVERY 42 DAYS
     Dates: start: 20110418
  13. POTASSIUM CHLORIDE [Concomitant]
     Dosage: 99 MG, 1X/DAY
  14. ASPIRIN [Concomitant]
     Dosage: DAILY

REACTIONS (2)
  - PERIRECTAL ABSCESS [None]
  - HYPERTENSION [None]
